FAERS Safety Report 5334856-5 (Version None)
Quarter: 2007Q2

REPORT INFORMATION
  Report Type: 
  Country: None (occurrence: None)
  Receive Date: 20070525
  Receipt Date: 20070514
  Transmission Date: 20071010
  Serious: Yes (Other)
  Sender: FDA-Public Use
  Company Number: GB-MERCK-0611GBR00168

PATIENT
  Age: 58 Year
  Sex: Female
  Weight: 73 kg

DRUGS (7)
  1. SINGULAIR [Suspect]
     Indication: ASTHMA
     Route: 048
     Dates: start: 20060731, end: 20060802
  2. FERROUS SULFATE [Concomitant]
     Route: 048
  3. FLUTICASONE PROPIONATE [Concomitant]
  4. LEVOTHYROXINE SODIUM [Concomitant]
     Route: 048
  5. PHENINDIONE [Suspect]
     Route: 048
  6. ALBUTEROL [Concomitant]
  7. SERETIDE [Concomitant]

REACTIONS (2)
  - DRUG INTERACTION [None]
  - INTERNATIONAL NORMALISED RATIO DECREASED [None]
